FAERS Safety Report 23225372 (Version 1)
Quarter: 2023Q4

REPORT INFORMATION
  Report Type: Spontaneous
  Country: TH (occurrence: None)
  Receive Date: 20231124
  Receipt Date: 20231124
  Transmission Date: 20240109
  Serious: Yes (Other)
  Sender: FDA-Public Use
  Company Number: TH-ROCHE-3462878

PATIENT

DRUGS (1)
  1. TECENTRIQ [Suspect]
     Active Substance: ATEZOLIZUMAB
     Indication: Hepatic cancer
     Dosage: ON 28/SEP/2023, PATIENT RECEIVED SECOND CYCLE OF MEDICINE.
     Route: 065

REACTIONS (5)
  - Stevens-Johnson syndrome [Unknown]
  - Oedema peripheral [Unknown]
  - Rash [Unknown]
  - Diarrhoea [Unknown]
  - Blood creatinine increased [Unknown]
